FAERS Safety Report 23583067 (Version 1)
Quarter: 2024Q1

REPORT INFORMATION
  Report Type: Spontaneous
  Country: DE (occurrence: DE)
  Receive Date: 20240301
  Receipt Date: 20240301
  Transmission Date: 20240409
  Serious: No
  Sender: FDA-Public Use
  Company Number: DE-ALKEM LABORATORIES LIMITED-DE-ALKEM-2023-09380

PATIENT
  Sex: Male

DRUGS (1)
  1. FINASTERIDE [Suspect]
     Active Substance: FINASTERIDE
     Indication: Alopecia
     Dosage: UNK (FILM-COATED TABLET)
     Route: 048

REACTIONS (5)
  - Adverse event [Recovered/Resolved]
  - Loss of libido [Recovered/Resolved]
  - Wrong technique in product usage process [Unknown]
  - Intentional product use issue [Unknown]
  - Drug effect less than expected [Unknown]
